FAERS Safety Report 18089338 (Version 2)
Quarter: 2021Q1

REPORT INFORMATION
  Report Type: Report from Study
  Country: None (occurrence: US)
  Receive Date: 20200730
  Receipt Date: 20210316
  Transmission Date: 20210419
  Serious: Yes (Hospitalization, Other)
  Sender: FDA-Public Use
  Company Number: US-ABBVIE-20K-163-3498100-00

PATIENT
  Age: 25 Year
  Sex: Female
  Weight: 90.8 kg

DRUGS (4)
  1. HUMIRA [Suspect]
     Active Substance: ADALIMUMAB
     Indication: PSORIASIS
     Route: 058
     Dates: start: 2015, end: 20150715
  2. CLONAZEPAM. [Concomitant]
     Active Substance: CLONAZEPAM
     Indication: ANXIETY
  3. GABAPENTIN. [Concomitant]
     Active Substance: GABAPENTIN
     Indication: PAIN
  4. HUMIRA [Suspect]
     Active Substance: ADALIMUMAB
     Indication: RHEUMATOID ARTHRITIS
     Route: 058
     Dates: start: 201508

REACTIONS (10)
  - Rheumatoid arthritis [Recovered/Resolved]
  - Upper respiratory tract infection [Recovered/Resolved]
  - Stab wound [Recovered/Resolved]
  - Postoperative wound infection [Recovered/Resolved]
  - COVID-19 [Recovered/Resolved]
  - Respiratory symptom [Unknown]
  - Pulmonary oedema [Recovered/Resolved]
  - Arterial injury [Recovering/Resolving]
  - Haemorrhage [Recovered/Resolved]
  - Allergy to surgical sutures [Recovered/Resolved]

NARRATIVE: CASE EVENT DATE: 201508
